FAERS Safety Report 18621585 (Version 1)
Quarter: 2020Q4

REPORT INFORMATION
  Report Type: Report from Study
  Country: US (occurrence: US)
  Receive Date: 20201215
  Receipt Date: 20201215
  Transmission Date: 20210114
  Serious: Yes (Other)
  Sender: FDA-Public Use
  Company Number: US-GILEAD-2020-0508600

PATIENT
  Age: 73 Year
  Sex: Male

DRUGS (1)
  1. IDELALISIB [Suspect]
     Active Substance: IDELALISIB
     Indication: LYMPHOMA
     Dosage: 150 MG, TID
     Route: 065
     Dates: start: 20201006, end: 20201201

REACTIONS (6)
  - Diarrhoea [Recovered/Resolved]
  - Dizziness [Unknown]
  - Unevaluable event [Unknown]
  - Disease progression [Unknown]
  - Drug ineffective [Unknown]
  - Fall [Unknown]

NARRATIVE: CASE EVENT DATE: 20201129
